FAERS Safety Report 9477934 (Version 6)
Quarter: 2013Q4

REPORT INFORMATION
  Report Type: Report from Study
  Country: NL (occurrence: NL)
  Receive Date: 20130827
  Receipt Date: 20131028
  Transmission Date: 20140711
  Serious: Yes (Hospitalization, Other)
  Sender: FDA-Public Use
  Company Number: NL-JNJFOC-20130810786

PATIENT
  Age: 7 Year
  Sex: Female
  Weight: 28 kg

DRUGS (9)
  1. GOLIMUMAB [Suspect]
     Indication: JUVENILE IDIOPATHIC ARTHRITIS
     Route: 058
     Dates: start: 20120905
  2. GOLIMUMAB [Suspect]
     Indication: JUVENILE IDIOPATHIC ARTHRITIS
     Dosage: WEEK 56
     Route: 058
     Dates: start: 20131009
  3. GOLIMUMAB [Suspect]
     Indication: JUVENILE IDIOPATHIC ARTHRITIS
     Dosage: WEEK 48
     Route: 058
     Dates: start: 20130812, end: 20130812
  4. GOLIMUMAB [Suspect]
     Indication: JUVENILE IDIOPATHIC ARTHRITIS
     Route: 058
     Dates: start: 20130911, end: 20130911
  5. METHOTREXATE [Suspect]
     Indication: JUVENILE IDIOPATHIC ARTHRITIS
     Route: 058
     Dates: start: 20130817, end: 20130824
  6. METHOTREXATE [Suspect]
     Indication: JUVENILE IDIOPATHIC ARTHRITIS
     Route: 058
     Dates: start: 20120905
  7. OMEPRAZOLE [Concomitant]
     Indication: PROPHYLAXIS
     Route: 048
     Dates: start: 20120709
  8. FOLIC ACID [Concomitant]
     Indication: PROPHYLAXIS
     Route: 048
     Dates: start: 20121003
  9. DICLOFENAC [Concomitant]
     Indication: PROPHYLAXIS
     Route: 048
     Dates: start: 20120625

REACTIONS (1)
  - Appendicitis [Recovered/Resolved]
